FAERS Safety Report 25737626 (Version 2)
Quarter: 2025Q3

REPORT INFORMATION
  Report Type: Report from Study
  Country: US (occurrence: US)
  Receive Date: 20250828
  Receipt Date: 20250909
  Transmission Date: 20251020
  Serious: Yes (Other)
  Sender: ABBVIE
  Company Number: US-ABBVIE-6433894

PATIENT
  Age: 73 Year
  Sex: Female
  Weight: 78.925 kg

DRUGS (2)
  1. CREON [Suspect]
     Active Substance: PANCRELIPASE AMYLASE\PANCRELIPASE LIPASE\PANCRELIPASE PROTEASE
     Indication: Pancreatic failure
     Route: 048
     Dates: start: 20240620, end: 202412
  2. CREON [Suspect]
     Active Substance: PANCRELIPASE AMYLASE\PANCRELIPASE LIPASE\PANCRELIPASE PROTEASE
     Indication: Pancreatic failure
     Route: 048
     Dates: start: 202508

REACTIONS (3)
  - Breast cancer female [Not Recovered/Not Resolved]
  - Pancreatic cyst [Recovering/Resolving]
  - Lymphadenectomy [Not Recovered/Not Resolved]

NARRATIVE: CASE EVENT DATE: 20241229
